FAERS Safety Report 7096658-1 (Version None)
Quarter: 2010Q4

REPORT INFORMATION
  Report Type: 
  Country: None (occurrence: None)
  Receive Date: 20101111
  Receipt Date: 20101105
  Transmission Date: 20110411
  Serious: Yes (Other)
  Sender: FDA-Public Use
  Company Number: US-GENZYME-THYM-1002043

PATIENT
  Age: 16 Month
  Sex: Male

DRUGS (5)
  1. THYMOGLOBULIN [Suspect]
     Indication: CORD BLOOD TRANSPLANT THERAPY
     Dosage: UNK
     Route: 042
  2. FLUDARABINE [Concomitant]
     Indication: CHEMOTHERAPY
     Dosage: UNK
  3. BUSULFAN [Concomitant]
     Indication: CHEMOTHERAPY
  4. CYCLOPHOSPHAMIDE [Concomitant]
     Indication: CHEMOTHERAPY
  5. ALEMTUZUMAB [Concomitant]
     Indication: CORD BLOOD TRANSPLANT THERAPY

REACTIONS (2)
  - DUCHENNE MUSCULAR DYSTROPHY [None]
  - TRANSPLANT REJECTION [None]
